FAERS Safety Report 13309887 (Version 4)
Quarter: 2022Q4

REPORT INFORMATION
  Report Type: Spontaneous
  Country: US (occurrence: US)
  Receive Date: 20170309
  Receipt Date: 20221028
  Transmission Date: 20230112
  Serious: Yes (Other)
  Sender: FDA-Public Use
  Company Number: US-JNJFOC-20170216823

PATIENT
  Age: 54 Year
  Sex: Male

DRUGS (1)
  1. RISPERDAL [Suspect]
     Active Substance: RISPERIDONE
     Indication: Product used for unknown indication
     Route: 048
     Dates: start: 20030727, end: 2004

REACTIONS (5)
  - Breast mass [Unknown]
  - Gynaecomastia [Unknown]
  - Emotional disorder [Unknown]
  - Angiolipoma [Unknown]
  - Weight increased [Unknown]

NARRATIVE: CASE EVENT DATE: 20130701
